FAERS Safety Report 20616894 (Version 1)
Quarter: 2022Q1

REPORT INFORMATION
  Report Type: Spontaneous
  Country: US (occurrence: None)
  Receive Date: 20220320
  Receipt Date: 20220320
  Transmission Date: 20220424
  Serious: Yes (Hospitalization)
  Sender: FDA-Public Use
  Company Number: None

PATIENT
  Age: 59 Month
  Sex: Female
  Weight: 60.75 kg

DRUGS (3)
  1. .DELTA.8-TETRAHYDROCANNABINOL\CANNABIDIOL\HERBALS [Suspect]
     Active Substance: .DELTA.8-TETRAHYDROCANNABINOL\CANNABIDIOL\HERBALS
     Indication: Substance use
     Dosage: OTHER QUANTITY : 1 ONE;?
     Route: 048
     Dates: start: 20220319, end: 20220319
  2. SYNTHROID [Concomitant]
     Active Substance: LEVOTHYROXINE SODIUM
  3. VITAMINS [Concomitant]
     Active Substance: VITAMINS

REACTIONS (6)
  - Dizziness [None]
  - Blood pressure increased [None]
  - Tachycardia [None]
  - Heart rate increased [None]
  - Dyspnoea [None]
  - Hypoaesthesia [None]

NARRATIVE: CASE EVENT DATE: 20220319
